FAERS Safety Report 7002708-0 (Version None)
Quarter: 2010Q3

REPORT INFORMATION
  Report Type: 
  Country: None (occurrence: None)
  Receive Date: 20100920
  Receipt Date: 20100908
  Transmission Date: 20110219
  Serious: Yes (Other)
  Sender: FDA-Public Use
  Company Number: SE-PFIZER INC-2010113793

PATIENT
  Age: 68 Year
  Sex: Female

DRUGS (1)
  1. NEURONTIN [Suspect]
     Indication: NEURALGIA
     Dosage: 2700 MG PER DAY
     Dates: start: 20000101

REACTIONS (7)
  - APHASIA [None]
  - DEPERSONALISATION [None]
  - DRUG EFFECT DECREASED [None]
  - FATIGUE [None]
  - LEARNING DISORDER [None]
  - READING DISORDER [None]
  - SWELLING FACE [None]
